FAERS Safety Report 9491922 (Version 1)
Quarter: 2013Q3

REPORT INFORMATION
  Report Type: Spontaneous
  Country: GB (occurrence: None)
  Receive Date: 20130827
  Receipt Date: 20130827
  Transmission Date: 20140515
  Serious: Yes (Life-Threatening)
  Sender: FDA-Public Use
  Company Number: US-ME-2012P1056318

PATIENT
  Age: 8 Year
  Sex: Male

DRUGS (1)
  1. FLECAINIDE [Suspect]
     Indication: SUPRAVENTRICULAR TACHYCARDIA
     Route: 048
     Dates: start: 200710, end: 20090523

REACTIONS (12)
  - Supraventricular tachycardia [None]
  - Drug level decreased [None]
  - Malaise [None]
  - Apnoea [None]
  - Hypotonia [None]
  - Agitation [None]
  - Confusional state [None]
  - Posture abnormal [None]
  - Electrocardiogram QRS complex prolonged [None]
  - Electrocardiogram QT prolonged [None]
  - Toxicity to various agents [None]
  - Food interaction [None]
